FAERS Safety Report 20110081 (Version 2)
Quarter: 2022Q1

REPORT INFORMATION
  Report Type: Report from Study
  Country: US (occurrence: US)
  Receive Date: 20211124
  Receipt Date: 20220113
  Transmission Date: 20220423
  Serious: Yes (Hospitalization)
  Sender: FDA-Public Use
  Company Number: US-REGENERON PHARMACEUTICALS, INC.-2021-101424

PATIENT
  Age: 71 Year
  Sex: Female

DRUGS (8)
  1. CASIRIVIMAB\IMDEVIMAB [Suspect]
     Active Substance: CASIRIVIMAB\IMDEVIMAB
     Indication: COVID-19
     Dosage: 600 MG, SINGLE
     Route: 042
     Dates: start: 20211109, end: 20211109
  2. LISINOPRIL                         /00894002/ [Concomitant]
     Indication: Product used for unknown indication
     Dosage: UNK
     Route: 065
     Dates: start: 20210924
  3. ALBUTEROL [Concomitant]
     Active Substance: ALBUTEROL
     Indication: Product used for unknown indication
     Dosage: UNK
     Route: 065
     Dates: start: 20210818
  4. PREDNISONE                         /00044702/ [Concomitant]
     Indication: Product used for unknown indication
     Dosage: UNK
     Route: 065
     Dates: start: 20211004
  5. CYCLOBENZAPRINE                    /00428402/ [Concomitant]
     Indication: Product used for unknown indication
     Dosage: UNK
     Route: 065
     Dates: start: 20210803
  6. CIPROFLOXACIN                      /00697202/ [Concomitant]
     Indication: Product used for unknown indication
     Dosage: UNK
     Route: 065
     Dates: start: 20211004
  7. ACETAMINOPHEN [Concomitant]
     Active Substance: ACETAMINOPHEN
     Indication: Product used for unknown indication
     Dosage: UNK
     Route: 065
     Dates: start: 20211109
  8. ONDANSETRON                        /00955302/ [Concomitant]
     Indication: Product used for unknown indication
     Dosage: UNK
     Route: 065
     Dates: start: 20211109

REACTIONS (7)
  - Dyspnoea [Unknown]
  - Oropharyngeal pain [Unknown]
  - Myalgia [Unknown]
  - Headache [Unknown]
  - Oxygen saturation decreased [Unknown]
  - Lung infiltration [Unknown]
  - Incorrect dose administered [Unknown]

NARRATIVE: CASE EVENT DATE: 20211101
